FAERS Safety Report 23150883 (Version 2)
Quarter: 2023Q4

REPORT INFORMATION
  Report Type: Spontaneous
  Country: US (occurrence: None)
  Receive Date: 20231106
  Receipt Date: 20231221
  Transmission Date: 20240110
  Serious: Yes (Life-Threatening, Hospitalization)
  Sender: FDA-Public Use
  Company Number: 2023A251086

PATIENT
  Sex: Female

DRUGS (3)
  1. TEZSPIRE [Suspect]
     Active Substance: TEZEPELUMAB-EKKO
  2. REPATHA [Suspect]
     Active Substance: EVOLOCUMAB
     Indication: Blood cholesterol increased
  3. REPATHA [Suspect]
     Active Substance: EVOLOCUMAB
     Indication: Blood cholesterol increased

REACTIONS (10)
  - Blood cholesterol decreased [Unknown]
  - Circumstance or information capable of leading to medication error [Unknown]
  - Progestin therapy [Unknown]
  - Injection site pain [Unknown]
  - Uterine dilation and curettage [Unknown]
  - Wrong technique in product usage process [Unknown]
  - Product closure issue [Unknown]
  - Needle issue [Unknown]
  - Drug ineffective [Unknown]
  - Device issue [Unknown]
